FAERS Safety Report 6398950-2 (Version None)
Quarter: 2009Q4

REPORT INFORMATION
  Report Type: 
  Country: None (occurrence: None)
  Receive Date: 20091007
  Receipt Date: 20090928
  Transmission Date: 20100525
  Serious: Yes (Hospitalization)
  Sender: FDA-Public Use
  Company Number: 1-20232076

PATIENT
  Sex: Male

DRUGS (6)
  1. ALLOPURINOL [Suspect]
     Indication: HYPERURICAEMIA
     Dosage: 300 MG, ORAL
     Route: 048
  2. GLIBENCLAMIDE [Concomitant]
  3. DIGOXIN [Concomitant]
  4. LOSARTAN [Concomitant]
  5. FUROSEMIDE [Concomitant]
  6. FORMOTEROL/BUDESONIDE [Concomitant]

REACTIONS (5)
  - ACIDOSIS [None]
  - ANGIOEDEMA [None]
  - DRUG RASH WITH EOSINOPHILIA AND SYSTEMIC SYMPTOMS [None]
  - DYSPNOEA [None]
  - RENAL FAILURE [None]
